FAERS Safety Report 9263359 (Version 1)
Quarter: 2013Q2

REPORT INFORMATION
  Report Type: Spontaneous
  Country: US (occurrence: US)
  Receive Date: 20130430
  Receipt Date: 20130430
  Transmission Date: 20140414
  Serious: No
  Sender: FDA-Public Use
  Company Number: US-ABBOTT-12P-163-1028726-00

PATIENT
  Age: 69 Year
  Sex: Male
  Weight: 59.02 kg

DRUGS (4)
  1. CREON [Suspect]
     Indication: PANCREATIC INSUFFICIENCY
     Dosage: 3-4 PER DAY
  2. CREON [Suspect]
     Dosage: 3-4 PER DAY
  3. CREON [Suspect]
     Dosage: 3-4 PER DAY
     Dates: end: 201101
  4. CREON [Suspect]
     Dosage: 3-4 PER DAY
     Dates: start: 201101

REACTIONS (4)
  - Dry skin [Unknown]
  - Rash [Unknown]
  - Ear pruritus [Unknown]
  - Frequent bowel movements [Unknown]
